FAERS Safety Report 9187090 (Version 2)
Quarter: 2013Q2

REPORT INFORMATION
  Report Type: Report from Study
  Country: DE (occurrence: DE)
  Receive Date: 20130325
  Receipt Date: 20130502
  Transmission Date: 20140414
  Serious: Yes (Hospitalization)
  Sender: FDA-Public Use
  Company Number: DE-UCBSA-081145

PATIENT
  Sex: Male

DRUGS (5)
  1. VIMPAT [Suspect]
     Indication: EPILEPSY
     Dosage: DAILY DOSE: 50 MG
     Dates: start: 20090819
  2. VIMPAT [Suspect]
     Indication: EPILEPSY
     Dosage: DAILY DOSE 400 MG
     Dates: end: 20100203
  3. CARBAMAZEPINE [Concomitant]
     Indication: EPILEPSY
     Dosage: DAILY DOSE: 1500 MG
  4. CARBAMAZEPINE [Concomitant]
     Indication: EPILEPSY
     Dosage: 1050 MG
  5. ZONISAMIDE [Concomitant]
     Indication: EPILEPSY
     Dosage: 500 MG

REACTIONS (2)
  - Grand mal convulsion [Unknown]
  - Drug ineffective [Recovered/Resolved]
